FAERS Safety Report 13151652 (Version 2)
Quarter: 2017Q1

REPORT INFORMATION
  Report Type: Spontaneous
  Country: BR (occurrence: BR)
  Receive Date: 20170125
  Receipt Date: 20170130
  Transmission Date: 20170428
  Serious: Yes (Death, Hospitalization, Other)
  Sender: FDA-Public Use
  Company Number: BR-JNJFOC-20170121968

PATIENT
  Age: 8 Decade
  Sex: Male

DRUGS (4)
  1. GLIFAGE [Concomitant]
     Active Substance: METFORMIN HYDROCHLORIDE
     Indication: TYPE 2 DIABETES MELLITUS
     Route: 065
  2. ZYTIGA [Suspect]
     Active Substance: ABIRATERONE ACETATE
     Indication: PROSTATE CANCER
     Route: 048
     Dates: start: 20140715
  3. PREDNISONE. [Concomitant]
     Active Substance: PREDNISONE
     Route: 065
     Dates: start: 20140715
  4. ZOLEDRONIC [Concomitant]
     Active Substance: ZOLEDRONIC ACID
     Route: 065

REACTIONS (3)
  - Septic shock [Fatal]
  - Prostate cancer [Unknown]
  - Pneumonia [Fatal]

NARRATIVE: CASE EVENT DATE: 20160814
